FAERS Safety Report 16920887 (Version 1)
Quarter: 2019Q4

REPORT INFORMATION
  Report Type: Spontaneous
  Country: US (occurrence: US)
  Receive Date: 20191015
  Receipt Date: 20191015
  Transmission Date: 20200122
  Serious: Yes (Death)
  Sender: FDA-Public Use
  Company Number: US-PFIZER INC-2019443770

PATIENT
  Age: 16 Year
  Sex: Male

DRUGS (31)
  1. SULFAMETHOXAZOLE/TRIMETHOPRIM [Suspect]
     Active Substance: SULFAMETHOXAZOLE\TRIMETHOPRIM
     Indication: PSEUDOMONAS INFECTION
  2. METRONIDAZOLE. [Suspect]
     Active Substance: METRONIDAZOLE
     Indication: PSEUDOMONAS INFECTION
  3. VORICONAZOLE. [Suspect]
     Active Substance: VORICONAZOLE
     Indication: PROPHYLAXIS
  4. SULFAMETHOXAZOLE/TRIMETHOPRIM [Suspect]
     Active Substance: SULFAMETHOXAZOLE\TRIMETHOPRIM
     Indication: CANDIDA INFECTION
  5. CIPROFLOXACIN. [Suspect]
     Active Substance: CIPROFLOXACIN
     Indication: STENOTROPHOMONAS INFECTION
  6. CIPROFLOXACIN. [Suspect]
     Active Substance: CIPROFLOXACIN
     Indication: CANDIDA INFECTION
  7. CIPROFLOXACIN. [Suspect]
     Active Substance: CIPROFLOXACIN
     Indication: ACINETOBACTER INFECTION
  8. SULFAMETHOXAZOLE/TRIMETHOPRIM [Suspect]
     Active Substance: SULFAMETHOXAZOLE\TRIMETHOPRIM
     Indication: ACINETOBACTER INFECTION
  9. METRONIDAZOLE. [Suspect]
     Active Substance: METRONIDAZOLE
     Indication: STENOTROPHOMONAS INFECTION
  10. CIPROFLOXACIN. [Suspect]
     Active Substance: CIPROFLOXACIN
     Indication: PSEUDOMONAS INFECTION
  11. POSACONAZOLE [Suspect]
     Active Substance: POSACONAZOLE
     Indication: ACINETOBACTER INFECTION
  12. MESALAMINE. [Concomitant]
     Active Substance: MESALAMINE
     Indication: IMMUNOMODULATORY THERAPY
     Dosage: UNK
  13. CIPROFLOXACIN. [Suspect]
     Active Substance: CIPROFLOXACIN
     Indication: ANTIBIOTIC PROPHYLAXIS
     Dosage: UNK
  14. POSACONAZOLE [Suspect]
     Active Substance: POSACONAZOLE
     Indication: ANTIBIOTIC PROPHYLAXIS
     Dosage: UNK
  15. POSACONAZOLE [Suspect]
     Active Substance: POSACONAZOLE
     Indication: STENOTROPHOMONAS INFECTION
  16. PREDNISONE. [Concomitant]
     Active Substance: PREDNISONE
     Dosage: 2 MG/KG, DAILY
  17. VORICONAZOLE. [Suspect]
     Active Substance: VORICONAZOLE
     Indication: ACINETOBACTER INFECTION
  18. METRONIDAZOLE. [Suspect]
     Active Substance: METRONIDAZOLE
     Indication: CANDIDA INFECTION
  19. VORICONAZOLE. [Suspect]
     Active Substance: VORICONAZOLE
     Indication: STENOTROPHOMONAS INFECTION
  20. VORICONAZOLE. [Suspect]
     Active Substance: VORICONAZOLE
     Indication: CANDIDA INFECTION
  21. SULFAMETHOXAZOLE/TRIMETHOPRIM [Suspect]
     Active Substance: SULFAMETHOXAZOLE\TRIMETHOPRIM
     Indication: ANTIBIOTIC PROPHYLAXIS
     Dosage: UNK
  22. METRONIDAZOLE. [Suspect]
     Active Substance: METRONIDAZOLE
     Indication: ACINETOBACTER INFECTION
  23. POSACONAZOLE [Suspect]
     Active Substance: POSACONAZOLE
     Indication: PSEUDOMONAS INFECTION
  24. POSACONAZOLE [Suspect]
     Active Substance: POSACONAZOLE
     Indication: CANDIDA INFECTION
  25. PREDNISONE. [Concomitant]
     Active Substance: PREDNISONE
     Indication: IMMUNOMODULATORY THERAPY
     Dosage: UNK, DAILY ({0.5 MG/KG)
  26. VORICONAZOLE. [Suspect]
     Active Substance: VORICONAZOLE
     Indication: PSEUDOMONAS INFECTION
     Dosage: UNK
  27. SULFAMETHOXAZOLE/TRIMETHOPRIM [Suspect]
     Active Substance: SULFAMETHOXAZOLE\TRIMETHOPRIM
     Indication: STENOTROPHOMONAS INFECTION
  28. INFLIXIMAB [Concomitant]
     Active Substance: INFLIXIMAB
     Indication: INFLAMMATORY BOWEL DISEASE
     Dosage: UNK (3, 5, 16, AND 18)
  29. METRONIDAZOLE. [Suspect]
     Active Substance: METRONIDAZOLE
     Indication: ANTIBIOTIC PROPHYLAXIS
     Dosage: UNK
  30. POSACONAZOLE [Suspect]
     Active Substance: POSACONAZOLE
     Indication: FUNGAL INFECTION
  31. MERCAPTOPURINE. [Concomitant]
     Active Substance: MERCAPTOPURINE
     Indication: IMMUNOMODULATORY THERAPY
     Dosage: UNK

REACTIONS (1)
  - Drug ineffective [Fatal]
